FAERS Safety Report 13399678 (Version 1)
Quarter: 2017Q2

REPORT INFORMATION
  Report Type: Other
  Country: GB (occurrence: GB)
  Receive Date: 20170404
  Receipt Date: 20170404
  Transmission Date: 20170830
  Serious: Yes (Other)
  Sender: FDA-Public Use
  Company Number: GB-LUPIN PHARMACEUTICALS INC.-E2B_00007227

PATIENT
  Age: 27 Year
  Sex: Female
  Weight: 101.6 kg

DRUGS (1)
  1. SERTRALINE [Suspect]
     Active Substance: SERTRALINE HYDROCHLORIDE
     Indication: DEPRESSION
     Dosage: 50 MG,UNK,UNKNOWN
     Route: 048
     Dates: start: 20161201

REACTIONS (1)
  - Anorgasmia [Not Recovered/Not Resolved]
